FAERS Safety Report 7935925-3 (Version None)
Quarter: 2011Q4

REPORT INFORMATION
  Report Type: 
  Country: None (occurrence: None)
  Receive Date: 20111123
  Receipt Date: 20111111
  Transmission Date: 20120403
  Serious: Yes (Other)
  Sender: FDA-Public Use
  Company Number: US-ELI_LILLY_AND_COMPANY-US201109004605

PATIENT
  Sex: Female

DRUGS (2)
  1. FORTEO [Suspect]
     Indication: OSTEOPOROSIS
     Dosage: 20 UG, QD
     Route: 065
     Dates: start: 20110906
  2. FORTEO [Suspect]
     Dosage: 20 UG, QD
     Route: 065
     Dates: end: 20110926

REACTIONS (14)
  - DYSSTASIA [None]
  - BONE LOSS [None]
  - INJECTION SITE HAEMORRHAGE [None]
  - BONE PAIN [None]
  - BALANCE DISORDER [None]
  - VISION BLURRED [None]
  - ASTHENIA [None]
  - LIMB DISCOMFORT [None]
  - DIZZINESS [None]
  - THROMBOSIS [None]
  - HEADACHE [None]
  - CEREBROVASCULAR ACCIDENT [None]
  - FEELING ABNORMAL [None]
  - INJECTION SITE HAEMATOMA [None]
